FAERS Safety Report 6969561-2 (Version None)
Quarter: 2010Q3

REPORT INFORMATION
  Report Type: 
  Country: None (occurrence: None)
  Receive Date: 20100907
  Receipt Date: 20100907
  Transmission Date: 20110219
  Serious: Yes (Other)
  Sender: FDA-Public Use
  Company Number: None

PATIENT
  Age: 32 Year
  Sex: Female
  Weight: 70.3075 kg

DRUGS (3)
  1. SERTRALINE HYDROCHLORIDE [Suspect]
     Indication: DEPRESSION
     Dosage: TAPERING FROM 100MG TO 0MG DAILY OVER 2 WKS PO
     Route: 048
     Dates: start: 19970907, end: 20100827
  2. SERTRALINE HYDROCHLORIDE [Suspect]
     Indication: PREMENSTRUAL SYNDROME
     Dosage: TAPERING FROM 100MG TO 0MG DAILY OVER 2 WKS PO
     Route: 048
     Dates: start: 19970907, end: 20100827
  3. SERTRALINE HYDROCHLORIDE [Suspect]
     Indication: SEASONAL AFFECTIVE DISORDER
     Dosage: TAPERING FROM 100MG TO 0MG DAILY OVER 2 WKS PO
     Route: 048
     Dates: start: 19970907, end: 20100827

REACTIONS (2)
  - DEPERSONALISATION [None]
  - DRUG WITHDRAWAL SYNDROME [None]
